FAERS Safety Report 20530758 (Version 4)
Quarter: 2024Q3

REPORT INFORMATION
  Report Type: Report from Study
  Country: RU (occurrence: RU)
  Receive Date: 20220301
  Receipt Date: 20240703
  Transmission Date: 20241016
  Serious: Yes (Other)
  Sender: NOVARTIS
  Company Number: RU-NOVARTISPH-NVSC2021RU301208

PATIENT
  Age: 64 Year
  Sex: Female
  Weight: 80 kg

DRUGS (2)
  1. KISQALI [Suspect]
     Active Substance: RIBOCICLIB
     Indication: Hormone receptor positive HER2 negative breast cancer
     Dosage: 600 MG (DAY 1-21 OF 28 DAY CYCLE)
     Route: 048
     Dates: start: 20210811, end: 20211201
  2. FULVESTRANT [Concomitant]
     Active Substance: FULVESTRANT
     Indication: Product used for unknown indication
     Dosage: 500 MG, ONCE IN 28 DAYS
     Route: 030
     Dates: start: 20210811, end: 20211201

REACTIONS (5)
  - Hepatitis toxic [Recovered/Resolved]
  - Jaundice [Unknown]
  - Chromaturia [Unknown]
  - Faeces discoloured [Unknown]
  - Fatigue [Unknown]

NARRATIVE: CASE EVENT DATE: 20211201
